FAERS Safety Report 5646790-1 (Version None)
Quarter: 2008Q1

REPORT INFORMATION
  Report Type: 
  Country: None (occurrence: None)
  Receive Date: 20080228
  Receipt Date: 20080218
  Transmission Date: 20080703
  Serious: Yes (Death)
  Sender: FDA-Public Use
  Company Number: CLOF-1000081

PATIENT
  Age: 76 Year

DRUGS (6)
  1. CLOFARABINE (CLOFARABINE) SOLUTION FOR INFUSION [Suspect]
     Indication: ACUTE MYELOID LEUKAEMIA
     Dosage: 35 MG, QDX5, INTRAVENOUS
     Route: 042
     Dates: start: 20080116, end: 20080120
  2. GLICLAZIDE (GLICLAZIDE) [Concomitant]
  3. METFORMIN HCL [Concomitant]
  4. QUINE SULPHATE [Concomitant]
  5. ACARBOSE [Concomitant]
  6. TIMOLOL MALEATE [Concomitant]

REACTIONS (2)
  - HEPATIC FIBROSIS [None]
  - PNEUMONIA [None]
